FAERS Safety Report 19446695 (Version 1)
Quarter: 2021Q2

REPORT INFORMATION
  Report Type: Spontaneous
  Country: GB (occurrence: GB)
  Receive Date: 20210622
  Receipt Date: 20210622
  Transmission Date: 20210717
  Serious: Yes (Other)
  Sender: FDA-Public Use
  Company Number: GB-AUROBINDO-AUR-APL-2021-025996

PATIENT
  Age: 1 Month
  Sex: Male
  Weight: 1.84 kg

DRUGS (1)
  1. MEROPENEM. [Suspect]
     Active Substance: MEROPENEM
     Indication: NECROTISING ENTEROCOLITIS NEONATAL
     Dosage: UNK (40 MG/KG/DOSE, TDS)
     Route: 042
     Dates: start: 20210602, end: 20210611

REACTIONS (1)
  - Neonatal seizure [Recovering/Resolving]

NARRATIVE: CASE EVENT DATE: 20210611
